FAERS Safety Report 8357571-2 (Version None)
Quarter: 2012Q2

REPORT INFORMATION
  Report Type: 
  Country: None (occurrence: None)
  Receive Date: 20120514
  Receipt Date: 20120507
  Transmission Date: 20120825
  Serious: Yes (Hospitalization, Other)
  Sender: FDA-Public Use
  Company Number: US-SHIRE-ALL1-2012-02319

PATIENT
  Age: 37 Year
  Sex: Male

DRUGS (2)
  1. VYVANSE [Suspect]
     Indication: PRODUCT USED FOR UNKNOWN INDICATION
     Dosage: 80 MG, UNKNOWN
     Route: 048
  2. VYVANSE [Suspect]
     Dosage: 120 MG, UNKNOWN
     Route: 048

REACTIONS (4)
  - DEPRESSION [None]
  - SUICIDAL BEHAVIOUR [None]
  - PSYCHOTIC DISORDER [None]
  - OVERDOSE [None]
